FAERS Safety Report 4636818-X (Version None)
Quarter: 2005Q2

REPORT INFORMATION
  Report Type: 
  Country: None (occurrence: None)
  Receive Date: 20050414
  Receipt Date: 20050401
  Transmission Date: 20051028
  Serious: Yes (Other)
  Sender: FDA-Public Use
  Company Number: 2005054896

PATIENT
  Age: 39 Year
  Sex: Female
  Weight: 120.2032 kg

DRUGS (5)
  1. CELEBREX [Suspect]
     Indication: MUSCULOSKELETAL STIFFNESS
     Dosage: 100 MG (100 MG, 1 IN 1 D); ORAL
     Route: 048
     Dates: start: 20000101
  2. CELEBREX [Suspect]
     Indication: PAIN
     Dosage: 100 MG (100 MG, 1 IN 1 D); ORAL
     Route: 048
     Dates: start: 20000101
  3. VICODIN [Concomitant]
  4. ESTRADIOL [Concomitant]
  5. MULTIVITAMINS (ASCORBIC ACID, ERGOCALCIFEROL, FOLIC ACID, NICOTINAMIDE [Concomitant]

REACTIONS (8)
  - ANXIETY [None]
  - ARTHRALGIA [None]
  - BONE INFECTION [None]
  - DEPRESSION [None]
  - HALLUCINATION [None]
  - LEG AMPUTATION [None]
  - TACHYCARDIA [None]
  - TREATMENT NONCOMPLIANCE [None]
